FAERS Safety Report 7824279-9 (Version None)
Quarter: 2011Q4

REPORT INFORMATION
  Report Type: 
  Country: None (occurrence: None)
  Receive Date: 20111019
  Receipt Date: 20111010
  Transmission Date: 20120403
  Serious: Yes (Hospitalization, Other)
  Sender: FDA-Public Use
  Company Number: NL-NOVOPROD-335106

PATIENT

DRUGS (2)
  1. LEUPROLIDE ACETATE [Concomitant]
     Dosage: 1 INJECTION EVERY 4 WEEKS
     Route: 058
     Dates: start: 20110817
  2. NORDITROPIN NORDIFLEX [Suspect]
     Indication: BODY HEIGHT BELOW NORMAL
     Dosage: 1.5 MG, QD
     Route: 065
     Dates: start: 20050101

REACTIONS (1)
  - EPIPHYSIOLYSIS [None]
